FAERS Safety Report 9413227 (Version 1)
Quarter: 2013Q3

REPORT INFORMATION
  Report Type: Spontaneous
  Country: GB (occurrence: GB)
  Receive Date: 20130722
  Receipt Date: 20130722
  Transmission Date: 20140515
  Serious: Yes (Other)
  Sender: FDA-Public Use
  Company Number: GB-ROCHE-1251001

PATIENT
  Age: 61 Year
  Sex: Female
  Weight: 65 kg

DRUGS (4)
  1. MABTHERA [Suspect]
     Indication: RHEUMATOID ARTHRITIS
     Route: 042
     Dates: start: 20050329, end: 201212
  2. CELEBREX [Concomitant]
  3. FOLIC ACID [Concomitant]
  4. METHOTREXATE SODIUM [Concomitant]

REACTIONS (1)
  - Malignant melanoma [Unknown]
